FAERS Safety Report 9993515 (Version 1)
Quarter: 2014Q1

REPORT INFORMATION
  Report Type: Report from Study
  Country: ES (occurrence: ES)
  Receive Date: 20140310
  Receipt Date: 20140310
  Transmission Date: 20141002
  Serious: Yes (Hospitalization)
  Sender: FDA-Public Use
  Company Number: ES-PFIZER INC-2014065822

PATIENT
  Age: 72 Year
  Sex: Female

DRUGS (12)
  1. ALDACTONE [Suspect]
     Indication: HYPERTENSION
     Dosage: 50 MG, 1X/DAY
     Route: 048
     Dates: start: 20130307, end: 20130511
  2. FUROSEMIDE [Interacting]
     Indication: HYPERTENSION
     Dosage: 40 MG, 1X/DAY
     Route: 048
     Dates: start: 201209
  3. ENALAPRIL [Interacting]
     Indication: HYPERTENSION
     Dosage: 1
     Route: 048
     Dates: start: 20130423, end: 20130511
  4. BISOPROLOL [Concomitant]
     Indication: ATRIAL FIBRILLATION
     Dosage: 2.5 MG, 1X/DAY
     Route: 048
     Dates: start: 20121109, end: 20130511
  5. DIGOXIN [Concomitant]
     Indication: ATRIAL FIBRILLATION
     Dosage: 0.75 MG, WEEKLY
     Route: 048
     Dates: start: 201111, end: 20130511
  6. DIAZEPAM [Concomitant]
     Indication: ANXIETY
     Dosage: 2 MG, 1X/DAY
     Route: 048
     Dates: start: 200608, end: 20130511
  7. SINTROM [Concomitant]
  8. OMEPRAZOLE [Concomitant]
  9. CALCIUM [Concomitant]
  10. IBANDRONIC ACID [Concomitant]
  11. LINAGLIPTIN [Concomitant]
  12. GLIBENCLAMIDE [Concomitant]

REACTIONS (2)
  - Renal failure acute [Recovered/Resolved]
  - Drug interaction [Recovered/Resolved]
